FAERS Safety Report 5642722-0 (Version None)
Quarter: 2008Q1

REPORT INFORMATION
  Report Type: 
  Country: None (occurrence: None)
  Receive Date: 20080227
  Receipt Date: 20080227
  Transmission Date: 20080703
  Serious: Yes (Hospitalization)
  Sender: FDA-Public Use
  Company Number: None

PATIENT
  Sex: Male

DRUGS (8)
  1. DILANTIN [Suspect]
     Indication: CONVULSION
     Dosage: 200MG PO BID (THERAPY DATES: PRIOR TO ADMISSION)
     Route: 048
  2. TEGRETOL-XR [Concomitant]
  3. LAMICTAL [Concomitant]
  4. ZYPREXA [Concomitant]
  5. ZONISAMIDE [Concomitant]
  6. M.V.I. [Concomitant]
  7. COGENTIN [Concomitant]
  8. TOPAMAX [Concomitant]

REACTIONS (2)
  - DRUG TOXICITY [None]
  - MENTAL STATUS CHANGES [None]
